FAERS Safety Report 17794355 (Version 3)
Quarter: 2021Q3

REPORT INFORMATION
  Report Type: Report from Study
  Country: BE (occurrence: BE)
  Receive Date: 20200515
  Receipt Date: 20210831
  Transmission Date: 20211014
  Serious: Yes (Other)
  Sender: FDA-Public Use
  Company Number: BE-MYLANLABS-2020M1047649

PATIENT
  Age: 74 Year
  Sex: Male
  Weight: 72 kg

DRUGS (38)
  1. ETOPOSIDE. [Suspect]
     Active Substance: ETOPOSIDE
     Indication: SMALL CELL LUNG CANCER EXTENSIVE STAGE
  2. BEVACIZUMAB. [Suspect]
     Active Substance: BEVACIZUMAB
     Indication: NON-SMALL CELL LUNG CANCER
     Dosage: UNK
     Route: 065
  3. DEXAMETHASONE. [Concomitant]
     Active Substance: DEXAMETHASONE
     Dosage: 12 MILLIGRAM
     Dates: start: 20200420, end: 20200420
  4. DEXAMETHASONE. [Concomitant]
     Active Substance: DEXAMETHASONE
     Dosage: UNK, QD
     Dates: start: 20201124, end: 20201124
  5. AKYNZEO [Concomitant]
     Active Substance: NETUPITANT\PALONOSETRON HYDROCHLORIDE
     Dosage: 300.5 MILLIGRAM
     Dates: start: 20200203, end: 20200203
  6. CLOBETASOL PROPIONATE. [Concomitant]
     Active Substance: CLOBETASOL PROPIONATE
     Indication: STOMATITIS
     Dosage: UNK, QD (0.05%)
     Dates: start: 20200320, end: 202004
  7. CISPLATIN. [Concomitant]
     Active Substance: CISPLATIN
     Dosage: UNK
  8. CARBOPLATIN. [Suspect]
     Active Substance: CARBOPLATIN
     Indication: SMALL CELL LUNG CANCER EXTENSIVE STAGE
  9. AVELOX [Concomitant]
     Active Substance: MOXIFLOXACIN HYDROCHLORIDE
     Indication: LEUKOPENIA
     Dosage: UNK UNK, QD
     Dates: start: 20200220, end: 20200302
  10. LONQUEX [Concomitant]
     Active Substance: LIPEGFILGRASTIM
     Dosage: UNK EVERY MONTH
     Dates: start: 20201124
  11. DIFLUCAN [Concomitant]
     Active Substance: FLUCONAZOLE
     Indication: RADIATION OESOPHAGITIS
     Dosage: UNK UNK, QD
     Dates: start: 20190603, end: 202003
  12. DEXAMETHASONE. [Concomitant]
     Active Substance: DEXAMETHASONE
     Dosage: 12 MILLIGRAM
     Dates: start: 20200302, end: 20200302
  13. DEXAMETHASONE. [Concomitant]
     Active Substance: DEXAMETHASONE
     Dosage: UNK, QD
     Dates: start: 20201215, end: 20201215
  14. CARBOPLATINUM [Concomitant]
     Active Substance: CARBOPLATIN
     Dosage: UNK
     Dates: start: 20201124, end: 20210126
  15. ETOPOSIDE. [Concomitant]
     Active Substance: ETOPOSIDE
     Dosage: UNK
     Dates: start: 20201124, end: 20201126
  16. PACLITAXEL. [Suspect]
     Active Substance: PACLITAXEL
     Dosage: UNK
     Route: 065
  17. ETOPOSIDE. [Suspect]
     Active Substance: ETOPOSIDE
     Indication: NON-SMALL CELL LUNG CANCER
     Dosage: 142.54 MILLIGRAM
     Route: 065
     Dates: start: 20200302
  18. SYNGEL [Concomitant]
     Indication: RADIATION OESOPHAGITIS
     Dosage: 0.33 DAY
     Dates: start: 20190603, end: 202003
  19. FLUOROMETHOLONE. [Concomitant]
     Active Substance: FLUOROMETHOLONE
     Dosage: UNK UNK, QD
     Dates: start: 20160320
  20. FLUOROMETHOLONE. [Concomitant]
     Active Substance: FLUOROMETHOLONE
     Dosage: UNK UNK, QD
     Dates: start: 20190320
  21. LONQUEX [Concomitant]
     Active Substance: LIPEGFILGRASTIM
     Dosage: UNK UNK, QD
     Dates: start: 20200402, end: 20200402
  22. AKYNZEO [Concomitant]
     Active Substance: NETUPITANT\PALONOSETRON HYDROCHLORIDE
     Dosage: UNK, QD
     Dates: start: 20201124, end: 20201124
  23. LITICAN                            /00690801/ [Concomitant]
     Active Substance: ALIZAPRIDE
     Dosage: UNK, QD
     Dates: start: 20201124
  24. COVERSYL                           /00790702/ [Concomitant]
     Active Substance: PERINDOPRIL
     Indication: HYPERTENSION
     Dosage: UNK, QD
     Dates: start: 2016
  25. ASAFLOW [Concomitant]
     Active Substance: ASPIRIN
     Dosage: UNK UNK, QD
     Dates: start: 2016
  26. ALLOPURINOL. [Concomitant]
     Active Substance: ALLOPURINOL
     Indication: GOUT
     Dosage: UNK UNK, QD
     Dates: start: 2016
  27. DEXAMETHASONE. [Concomitant]
     Active Substance: DEXAMETHASONE
     Dosage: 12 MILLIGRAM
     Dates: start: 20200203, end: 20200203
  28. CARBOPLATIN. [Suspect]
     Active Substance: CARBOPLATIN
     Indication: NON-SMALL CELL LUNG CANCER
     Dosage: 300 MILLIGRAM
     Route: 065
     Dates: start: 20200302
  29. AKYNZEO [Concomitant]
     Active Substance: NETUPITANT\PALONOSETRON HYDROCHLORIDE
     Dosage: 300.5 MILLIGRAM
     Dates: start: 20200420, end: 20200420
  30. MOUTH WASH [Concomitant]
     Dosage: UNK
     Dates: start: 20201230, end: 20210105
  31. ATEZOLIZUMAB. [Suspect]
     Active Substance: ATEZOLIZUMAB
     Indication: NON-SMALL CELL LUNG CANCER
     Dosage: 1200 MILLIGRAM, 3XW
     Route: 041
     Dates: start: 20200302, end: 20200302
  32. ATEZOLIZUMAB. [Suspect]
     Active Substance: ATEZOLIZUMAB
     Indication: SMALL CELL LUNG CANCER EXTENSIVE STAGE
     Dosage: 1200 MILLIGRAM, 3XW
     Route: 041
     Dates: start: 20200420, end: 20200420
  33. PERINDOPRIL [Concomitant]
     Active Substance: PERINDOPRIL
     Indication: HYPERTENSION
     Dosage: UNK UNK, QD
     Dates: start: 2016
  34. LONQUEX [Concomitant]
     Active Substance: LIPEGFILGRASTIM
     Dosage: UNK, QD
     Dates: start: 20200605, end: 20200605
  35. PANTOMED                           /01263204/ [Concomitant]
     Active Substance: PANTOPRAZOLE SODIUM
     Indication: RADIATION OESOPHAGITIS
     Dosage: 0.5 DAY
     Dates: start: 20190603
  36. AKYNZEO [Concomitant]
     Active Substance: NETUPITANT\PALONOSETRON HYDROCHLORIDE
     Dosage: UNK, QD
     Dates: start: 20201215, end: 20201215
  37. DAFALGAN [Concomitant]
     Active Substance: ACETAMINOPHEN
     Indication: RADIATION OESOPHAGITIS
     Dosage: UNK, QID
     Dates: start: 20190603, end: 202003
  38. MOUTH WASH [Concomitant]
     Indication: STOMATITIS
     Dosage: UNK, QD
     Dates: start: 20200320, end: 202004

REACTIONS (3)
  - Neutropenia [Recovered/Resolved]
  - Psoriasis [Recovered/Resolved]
  - Dermatitis [Recovering/Resolving]

NARRATIVE: CASE EVENT DATE: 20200313
